FAERS Safety Report 4931673-2 (Version None)
Quarter: 2006Q1

REPORT INFORMATION
  Report Type: 
  Country: None (occurrence: None)
  Receive Date: 20060303
  Receipt Date: 20060105
  Transmission Date: 20060701
  Serious: No
  Sender: FDA-Public Use
  Company Number: US-BRISTOL-MYERS SQUIBB COMPANY-13238001

PATIENT
  Sex: Female

DRUGS (1)
  1. ERBITUX [Suspect]
     Dosage: LOADING DOSE. STOPPED/RESTARTED.
     Route: 042
     Dates: start: 20060104, end: 20060104

REACTIONS (2)
  - HYPOTENSION [None]
  - RASH GENERALISED [None]
